FAERS Safety Report 11446045 (Version 1)
Quarter: 2015Q3

REPORT INFORMATION
  Report Type: Spontaneous
  Country: US (occurrence: US)
  Receive Date: 20150831
  Receipt Date: 20150831
  Transmission Date: 20151125
  Serious: No
  Sender: FDA-Public Use
  Company Number: US-ELI_LILLY_AND_COMPANY-US200808005320

PATIENT
  Age: 25 Year
  Sex: Female

DRUGS (1)
  1. CYMBALTA [Suspect]
     Active Substance: DULOXETINE HYDROCHLORIDE
     Dosage: 30 MG, UNK
     Dates: start: 20080819

REACTIONS (7)
  - Tension [Unknown]
  - Yawning [Unknown]
  - Hot flush [Unknown]
  - Neck pain [Unknown]
  - Hyperhidrosis [Unknown]
  - Fatigue [Unknown]
  - Pain in jaw [Unknown]

NARRATIVE: CASE EVENT DATE: 20080819
